FAERS Safety Report 6592606-9 (Version None)
Quarter: 2010Q1

REPORT INFORMATION
  Report Type: 
  Country: None (occurrence: None)
  Receive Date: 20100221
  Receipt Date: 20100208
  Transmission Date: 20100710
  Serious: Yes (Death)
  Sender: FDA-Public Use
  Company Number: JP-BRISTOL-MYERS SQUIBB COMPANY-14972996

PATIENT
  Age: 63 Year
  Sex: Male

DRUGS (3)
  1. BRIPLATIN [Suspect]
     Indication: NON-SMALL CELL LUNG CANCER
     Route: 041
  2. VINORELBINE [Suspect]
     Indication: NON-SMALL CELL LUNG CANCER
     Dosage: INJ
     Route: 042
  3. RADIOTHERAPY [Suspect]
     Indication: NON-SMALL CELL LUNG CANCER
     Dosage: 1 DF:(60 GY), INCLUDING A 1-WK INTERRUPTION AT 30 GY, Q4W,FOLLOWED BY TWO CONSOLIDATION CYCLES Q4W

REACTIONS (1)
  - PNEUMONITIS [None]
